FAERS Safety Report 9314161 (Version 4)
Quarter: 2013Q3

REPORT INFORMATION
  Report Type: Spontaneous
  Country: US (occurrence: US)
  Receive Date: 20130529
  Receipt Date: 20130701
  Transmission Date: 20140515
  Serious: Yes (Hospitalization, Other)
  Sender: FDA-Public Use
  Company Number: US-JNJFOC-20130513522

PATIENT
  Age: 55 Year
  Sex: Female
  Weight: 89.81 kg

DRUGS (8)
  1. INVOKANA [Suspect]
     Indication: TYPE 2 DIABETES MELLITUS
     Route: 048
     Dates: start: 20130509, end: 20130517
  2. METFORMIN [Concomitant]
     Indication: DIABETES MELLITUS
     Route: 048
  3. ZIAC [Concomitant]
     Indication: HYPERTENSION
     Route: 048
  4. BAYER ASPIRIN [Concomitant]
     Route: 048
  5. LOSARTAN [Concomitant]
     Indication: HYPERTENSION
     Route: 048
  6. LIPITOR [Concomitant]
     Indication: BLOOD CHOLESTEROL INCREASED
     Route: 048
  7. VICTOZA [Concomitant]
     Indication: DIABETES MELLITUS
     Route: 058
  8. SOTALOL [Concomitant]
     Indication: ATRIAL FIBRILLATION
     Route: 048
     Dates: start: 20120531

REACTIONS (7)
  - Atrial fibrillation [Recovered/Resolved]
  - Arrhythmia [Recovered/Resolved]
  - Blood potassium decreased [Recovered/Resolved]
  - Blood electrolytes decreased [Recovered/Resolved]
  - Heart rate increased [Recovered/Resolved]
  - Blood glucose abnormal [Unknown]
  - Pollakiuria [Unknown]
